FAERS Safety Report 9353731 (Version 1)
Quarter: 2013Q2

REPORT INFORMATION
  Report Type: Spontaneous
  Country: CA (occurrence: CA)
  Receive Date: 20130618
  Receipt Date: 20130618
  Transmission Date: 20140414
  Serious: Yes (Other)
  Sender: FDA-Public Use
  Company Number: CA-PFIZER INC-2013177951

PATIENT
  Sex: Female

DRUGS (7)
  1. CELEBREX [Suspect]
     Dosage: 200 MG, 2X/DAY
     Dates: start: 20000511
  2. CELEBREX [Suspect]
     Dosage: BELOW 400 MG, DAILY (UNSPECIFIED) PRIOR 01JAN2006
  3. CELEXA [Concomitant]
     Dosage: UNK
  4. ASPIRIN [Concomitant]
     Dosage: UNK
  5. FLEXERIL [Concomitant]
     Dosage: UNK
  6. TYLENOL W/CODEINE NO. 3 [Concomitant]
     Dosage: UNK
  7. AMITRIPTYLINE [Concomitant]
     Dosage: UNK

REACTIONS (1)
  - Bundle branch block left [Unknown]
